FAERS Safety Report 18422165 (Version 3)
Quarter: 2020Q4

REPORT INFORMATION
  Report Type: Spontaneous
  Country: US (occurrence: US)
  Receive Date: 20201023
  Receipt Date: 20201230
  Transmission Date: 20210114
  Serious: Yes (Hospitalization, Other)
  Sender: FDA-Public Use
  Company Number: US-JAZZ-2020-US-013590

PATIENT
  Sex: Male

DRUGS (1)
  1. ZEPZELCA [Suspect]
     Active Substance: LURBINECTEDIN
     Indication: SMALL CELL LUNG CANCER METASTATIC
     Dosage: UNK

REACTIONS (5)
  - Neutrophil count decreased [Unknown]
  - Nausea [Unknown]
  - Dehydration [Unknown]
  - White blood cell count decreased [Unknown]
  - Metastases to central nervous system [Unknown]
